FAERS Safety Report 23694881 (Version 4)
Quarter: 2024Q3

REPORT INFORMATION
  Report Type: Report from Study
  Country: JP (occurrence: JP)
  Receive Date: 20240402
  Receipt Date: 20240729
  Transmission Date: 20241016
  Serious: Yes (Other)
  Sender: SANOFI AVENTIS
  Company Number: JP-SA-2024SA093179

PATIENT
  Age: 60 Year
  Sex: Male
  Weight: 64 kg

DRUGS (8)
  1. VANDETANIB [Suspect]
     Active Substance: VANDETANIB
     Indication: Medullary thyroid cancer
     Dosage: DAILY DOSE: 300 MG
     Route: 048
     Dates: start: 20170207, end: 20170228
  2. VANDETANIB [Suspect]
     Active Substance: VANDETANIB
     Dosage: DAILY DOSE: 200 MG
     Route: 048
     Dates: start: 20170314, end: 20170613
  3. VANDETANIB [Suspect]
     Active Substance: VANDETANIB
     Dosage: DAILY DOSE: 200 MG
     Route: 048
     Dates: start: 20170620, end: 20171031
  4. VANDETANIB [Suspect]
     Active Substance: VANDETANIB
     Dosage: DAILY DOSE: 200 MG
     Route: 048
     Dates: start: 20171107, end: 20180130
  5. VANDETANIB [Suspect]
     Active Substance: VANDETANIB
     Dosage: DAILY DOSE: 200 MG
     Route: 048
     Dates: start: 20180213
  6. LEVOTHYROXINE [Concomitant]
     Active Substance: LEVOTHYROXINE\LEVOTHYROXINE SODIUM
     Indication: Hypothyroidism
     Dosage: DAILY DOSE: 100 UG
     Route: 048
  7. BISOPROLOL FUMARATE [Concomitant]
     Active Substance: BISOPROLOL FUMARATE
     Indication: Hypertension
     Dosage: DAILY DOSE: 2.5 MG
     Route: 048
  8. GLYCOSAMINOGLYCANS [Concomitant]
     Active Substance: GLYCOSAMINOGLYCANS
     Indication: Prophylaxis
     Dosage: UNK
     Route: 065
     Dates: start: 20170207

REACTIONS (5)
  - Hypokalaemia [Recovered/Resolved]
  - Electrocardiogram QT prolonged [Recovering/Resolving]
  - Hypertension [Recovering/Resolving]
  - Diarrhoea [Not Recovered/Not Resolved]
  - Palmar-plantar erythrodysaesthesia syndrome [Recovering/Resolving]

NARRATIVE: CASE EVENT DATE: 20170213
